FAERS Safety Report 10368483 (Version 2)
Quarter: 2014Q3

REPORT INFORMATION
  Report Type: Spontaneous
  Country: BR (occurrence: BR)
  Receive Date: 20140807
  Receipt Date: 20140812
  Transmission Date: 20150326
  Serious: Yes (Other)
  Sender: FDA-Public Use
  Company Number: BR-BRISTOL-MYERS SQUIBB COMPANY-21278635

PATIENT
  Age: 53 Year
  Sex: Female

DRUGS (3)
  1. OMEPRAZOLE. [Concomitant]
     Active Substance: OMEPRAZOLE
     Indication: GASTRITIS
  2. ARADOIS [Concomitant]
     Active Substance: LOSARTAN POTASSIUM
     Indication: HYPERTENSION
  3. GLIFAGE XR [Suspect]
     Active Substance: METFORMIN HYDROCHLORIDE
     Indication: DIABETES MELLITUS
     Dosage: JUL2014-UNK:1G/DAY?TABLET

REACTIONS (8)
  - Functional gastrointestinal disorder [Unknown]
  - Discomfort [Unknown]
  - Medication residue present [Unknown]
  - Gallbladder disorder [Unknown]
  - Hyperglycaemia [Recovered/Resolved]
  - Drug dose omission [Unknown]
  - Drug ineffective [Unknown]
  - Nervousness [Unknown]
